FAERS Safety Report 17609537 (Version 1)
Quarter: 2020Q2

REPORT INFORMATION
  Report Type: Spontaneous
  Country: AU (occurrence: AU)
  Receive Date: 20200401
  Receipt Date: 20200401
  Transmission Date: 20200713
  Serious: Yes (Other)
  Sender: FDA-Public Use
  Company Number: AU-PFIZER INC-2020121316

PATIENT
  Age: 35 Year
  Sex: Male

DRUGS (4)
  1. RISPERIDONE. [Suspect]
     Active Substance: RISPERIDONE
     Dosage: 3 MG, 1X/DAY (NOCTE)
  2. CHOLECALCIFEROL [Suspect]
     Active Substance: CHOLECALCIFEROL
     Dosage: 75 UG, 2X/DAY
  3. MG [MAGNESIUM] [Suspect]
     Active Substance: MAGNESIUM
     Dosage: 400 MG, 1X/DAY (MANE)
  4. POTASSIUM CHLORIDE. [Suspect]
     Active Substance: POTASSIUM CHLORIDE
     Dosage: 600 MG, 2X/DAY

REACTIONS (10)
  - Sinus tachycardia [Unknown]
  - Orthostatic hypotension [Unknown]
  - Electrocardiogram QT prolonged [Unknown]
  - Heart valve incompetence [Unknown]
  - Mitral valve prolapse [Unknown]
  - Electrocardiogram T wave amplitude decreased [Unknown]
  - Electrocardiogram ST segment elevation [Unknown]
  - Tachycardia [Unknown]
  - Left atrial enlargement [Unknown]
  - Left atrial dilatation [Unknown]

NARRATIVE: CASE EVENT DATE: 20200309
